FAERS Safety Report 25208395 (Version 1)
Quarter: 2025Q2

REPORT INFORMATION
  Report Type: Spontaneous
  Country: FR (occurrence: FR)
  Receive Date: 20250417
  Receipt Date: 20250417
  Transmission Date: 20250717
  Serious: Yes (Hospitalization, Other)
  Sender: BRISTOL MYERS SQUIBB
  Company Number: None

PATIENT
  Age: 86 Year
  Sex: Male
  Weight: 71 kg

DRUGS (6)
  1. ELIQUIS [Suspect]
     Active Substance: APIXABAN
     Indication: Deep vein thrombosis
     Dosage: 5 MG/DAY (IN 2 DOSES)
     Route: 048
     Dates: start: 20250324, end: 20250331
  2. CLINDAMYCIN [Suspect]
     Active Substance: CLINDAMYCIN
     Indication: Intervertebral discitis
     Dosage: 1800 MG/D (IN 3 DOSES)
     Route: 048
     Dates: start: 20250310, end: 20250330
  3. CEFTRIAXONE [Suspect]
     Active Substance: CEFTRIAXONE
     Indication: Intervertebral discitis
     Route: 058
     Dates: start: 20250314, end: 20250402
  4. ALLOPURINOL [Suspect]
     Active Substance: ALLOPURINOL
     Indication: Gout
     Route: 048
     Dates: start: 202411, end: 20250212
  5. ALLOPURINOL [Suspect]
     Active Substance: ALLOPURINOL
     Route: 048
     Dates: start: 20250213, end: 20250223
  6. ALLOPURINOL [Suspect]
     Active Substance: ALLOPURINOL
     Route: 048
     Dates: start: 20250224, end: 20250403

REACTIONS (2)
  - Rash maculo-papular [Recovering/Resolving]
  - Epidermolysis [Recovering/Resolving]

NARRATIVE: CASE EVENT DATE: 20250327
